FAERS Safety Report 17179943 (Version 2)
Quarter: 2019Q4

REPORT INFORMATION
  Report Type: Spontaneous
  Country: GB (occurrence: GB)
  Receive Date: 20191219
  Receipt Date: 20191223
  Transmission Date: 20200122
  Serious: Yes (Hospitalization, Other)
  Sender: FDA-Public Use
  Company Number: GB-PFIZER INC-2019541503

PATIENT
  Age: 89 Year
  Sex: Male

DRUGS (10)
  1. HYDROXOCOBALAMIN [Concomitant]
     Active Substance: HYDROXOCOBALAMIN
     Dosage: 1 DF, EVERY 3 MONTHS (Q3M)
     Route: 030
  2. LACTULOSE. [Concomitant]
     Active Substance: LACTULOSE
     Dosage: 2 DF, 1X/DAY (10G/15ML)
     Route: 048
  3. AMLODIPINE [Concomitant]
     Active Substance: AMLODIPINE BESYLATE
     Dosage: 5 MG, 1X/DAY (QD)
     Route: 048
  4. SIMVASTATIN. [Concomitant]
     Active Substance: SIMVASTATIN
     Dosage: 10 MG, 1X/DAY (QD)
     Route: 048
  5. ACETYLSALICYLIC ACID [Concomitant]
     Active Substance: ASPIRIN
     Dosage: 75 MG, 1X/DAY (QD)
     Route: 048
  6. RAMIPRIL. [Suspect]
     Active Substance: RAMIPRIL
     Dosage: 2.5 MG, 1X/DAY (QD)
     Route: 048
  7. OMEPRAZOLE. [Concomitant]
     Active Substance: OMEPRAZOLE
     Dosage: 20 MG, 1X/DAY (QD)
     Route: 048
  8. NAPROXEN. [Suspect]
     Active Substance: NAPROXEN
     Dosage: UNK
  9. CETRABEN [LIGHT LIQUID PARAFFIN;WHITE SOFT PARAFFIN] [Concomitant]
     Dosage: UNK, AS NEEDED (PRN)
  10. SOLIFENACIN [Concomitant]
     Active Substance: SOLIFENACIN
     Dosage: 5 MG, 1X/DAY (QD)
     Route: 048

REACTIONS (3)
  - Acute kidney injury [Recovered/Resolved]
  - Renal impairment [Unknown]
  - Hyperkalaemia [Unknown]

NARRATIVE: CASE EVENT DATE: 20191016
